FAERS Safety Report 9288932 (Version 1)
Quarter: 2013Q2

REPORT INFORMATION
  Report Type: Spontaneous
  Country: US (occurrence: US)
  Receive Date: 20130514
  Receipt Date: 20130514
  Transmission Date: 20140414
  Serious: Yes (Death)
  Sender: FDA-Public Use
  Company Number: US-GLAXOSMITHKLINE-A1023444A

PATIENT
  Age: 63 Year
  Sex: Female

DRUGS (4)
  1. VOTRIENT [Suspect]
     Indication: RENAL CANCER
     Dosage: 800MG PER DAY
     Route: 048
     Dates: start: 20130330
  2. DOC-Q-LAX [Concomitant]
  3. HYDROCODONE + ACETAMINOPHEN [Concomitant]
  4. MEGESTROL [Concomitant]

REACTIONS (1)
  - Death [Fatal]
